FAERS Safety Report 4524219-4 (Version None)
Quarter: 2004Q4

REPORT INFORMATION
  Report Type: 
  Country: None (occurrence: None)
  Receive Date: 20041209
  Receipt Date: 20041129
  Transmission Date: 20050328
  Serious: Yes (Hospitalization)
  Sender: FDA-Public Use
  Company Number: 2004CG02396

PATIENT
  Age: 69 Year
  Sex: Female

DRUGS (4)
  1. PULMICORT [Suspect]
     Indication: BRONCHITIS
     Dates: start: 20040801, end: 20040815
  2. PYOSTACINE [Suspect]
     Indication: BRONCHITIS
     Dates: start: 20040801, end: 20040815
  3. CELECTOL [Concomitant]
  4. ZOCOR [Concomitant]

REACTIONS (1)
  - PANCREATITIS ACUTE [None]
